FAERS Safety Report 23332703 (Version 1)
Quarter: 2023Q4

REPORT INFORMATION
  Report Type: Spontaneous
  Country: US (occurrence: US)
  Receive Date: 20231222
  Receipt Date: 20231222
  Transmission Date: 20240110
  Serious: No
  Sender: FDA-Public Use
  Company Number: US-Covis Pharma GmbH-2023COV01977

PATIENT
  Sex: Female
  Weight: 65.58 kg

DRUGS (5)
  1. RILUZOLE [Suspect]
     Active Substance: RILUZOLE
     Indication: Product used for unknown indication
     Route: 065
  2. RELYVRIO [Suspect]
     Active Substance: SODIUM PHENYLBUTYRATE\TAURURSODIOL
  3. RADICAVA [Suspect]
     Active Substance: EDARAVONE
     Indication: Amyotrophic lateral sclerosis
  4. APIXABAN [Concomitant]
     Active Substance: APIXABAN
  5. CELECOXIB [Concomitant]
     Active Substance: CELECOXIB

REACTIONS (1)
  - Diarrhoea [Unknown]
